FAERS Safety Report 7933886-4 (Version None)
Quarter: 2011Q4

REPORT INFORMATION
  Report Type: 
  Country: None (occurrence: None)
  Receive Date: 20111122
  Receipt Date: 20111114
  Transmission Date: 20120403
  Serious: Yes (Hospitalization)
  Sender: FDA-Public Use
  Company Number: US-BAYER-2011-050168

PATIENT
  Age: 25 Year
  Sex: Female
  Weight: 58.957 kg

DRUGS (6)
  1. PRILOSEC [Concomitant]
     Dosage: 20 MG, PRN
  2. DROSPIRENONE AND ETHINYL ESTRADIOL [Suspect]
     Indication: CONTRACEPTION
     Dosage: UNK
     Dates: start: 20060101, end: 20090101
  3. METOPROLOL RETARD [Concomitant]
     Dosage: 25 MG, TAB
     Dates: start: 20080123, end: 20081219
  4. YASMIN [Suspect]
     Indication: CONTRACEPTION
     Dosage: UNK
     Dates: start: 20060101, end: 20090101
  5. LOPRESSOR [Concomitant]
  6. ALKA SELTZER [Concomitant]

REACTIONS (5)
  - CHOLELITHIASIS [None]
  - CHOLECYSTECTOMY [None]
  - CHOLECYSTITIS CHRONIC [None]
  - PAIN [None]
  - INJURY [None]
